FAERS Safety Report 18787307 (Version 2)
Quarter: 2022Q1

REPORT INFORMATION
  Report Type: Spontaneous
  Country: DE (occurrence: DE)
  Receive Date: 20210126
  Receipt Date: 20220211
  Transmission Date: 20220424
  Serious: Yes (Congenital Anomaly, Other)
  Sender: FDA-Public Use
  Company Number: None

PATIENT
  Sex: Female

DRUGS (4)
  1. ESCITALOPRAM [Suspect]
     Active Substance: ESCITALOPRAM OXALATE
     Indication: Tension headache
     Dosage: 5 MG PER DAY
     Route: 064
     Dates: start: 20190615, end: 20190716
  2. GABAPENTIN [Suspect]
     Active Substance: GABAPENTIN
     Indication: Tension headache
     Dosage: 900 MG/D, 300-0-600 MG
     Route: 064
     Dates: start: 20190615, end: 20190716
  3. EUTHYROX [Concomitant]
     Active Substance: LEVOTHYROXINE SODIUM
     Indication: Thyroid hormone replacement therapy
     Dosage: 150 G/D, BIS 112 G PER DAY
     Route: 064
     Dates: start: 20190615, end: 20190910
  4. PROGESTERONE [Concomitant]
     Active Substance: PROGESTERONE
     Indication: Haemorrhage in pregnancy
     Dosage: 200 MG PER DAY, 100-0-100
     Route: 064
     Dates: start: 20190730, end: 20190801

REACTIONS (4)
  - Foetal exposure during pregnancy [Unknown]
  - Congenital absence of vertebra [Unknown]
  - Gastroschisis [Unknown]
  - Subdural hygroma [Unknown]
